FAERS Safety Report 11050343 (Version 1)
Quarter: 2015Q2

REPORT INFORMATION
  Report Type: Spontaneous
  Country: US (occurrence: US)
  Receive Date: 20150421
  Receipt Date: 20150421
  Transmission Date: 20150821
  Serious: Yes (Other)
  Sender: FDA-Public Use
  Company Number: US-ALVOGEN-2015AL000741

PATIENT
  Sex: Female

DRUGS (2)
  1. MACRODANTIN [Suspect]
     Active Substance: NITROFURANTOIN
     Indication: CYSTITIS
     Route: 048
  2. MACRODANTIN [Suspect]
     Active Substance: NITROFURANTOIN
     Indication: KIDNEY INFECTION
     Route: 048

REACTIONS (4)
  - Eye swelling [Recovered/Resolved]
  - Drug hypersensitivity [Recovered/Resolved]
  - Headache [Recovered/Resolved]
  - Lip swelling [Recovered/Resolved]
